FAERS Safety Report 4459754-0 (Version None)
Quarter: 2004Q3

REPORT INFORMATION
  Report Type: 
  Country: None (occurrence: None)
  Receive Date: 20040928
  Receipt Date: 20031208
  Transmission Date: 20050211
  Serious: No
  Sender: FDA-Public Use
  Company Number: US-BRISTOL-MYERS SQUIBB COMPANY-12453270

PATIENT
  Sex: Male

DRUGS (1)
  1. KENALOG-40 [Suspect]
     Route: 030

REACTIONS (1)
  - INJECTION SITE REACTION [None]
